FAERS Safety Report 8518276-8 (Version None)
Quarter: 2012Q3

REPORT INFORMATION
  Report Type: 
  Country: None (occurrence: None)
  Receive Date: 20120718
  Receipt Date: 20111220
  Transmission Date: 20120928
  Serious: Yes (Death, Hospitalization)
  Sender: FDA-Public Use
  Company Number: US-BRISTOL-MYERS SQUIBB COMPANY-16305799

PATIENT
  Age: 78 Year
  Sex: Male
  Weight: 97 kg

DRUGS (2)
  1. COUMADIN [Suspect]
  2. PRADAXA [Suspect]
     Indication: ATRIAL FIBRILLATION
     Route: 048
     Dates: start: 20110501, end: 20110620

REACTIONS (1)
  - GASTROINTESTINAL HAEMORRHAGE [None]
